FAERS Safety Report 14324561 (Version 2)
Quarter: 2018Q1

REPORT INFORMATION
  Report Type: Report from Study
  Country: US (occurrence: US)
  Receive Date: 20171226
  Receipt Date: 20180130
  Transmission Date: 20180509
  Serious: Yes (Other)
  Sender: FDA-Public Use
  Company Number: US-BAUSCH-BL-2017-034328

PATIENT
  Sex: Female
  Weight: 68.1 kg

DRUGS (4)
  1. APRISO [Suspect]
     Active Substance: MESALAMINE
     Dosage: RE-STARTED LAST TUESDAY
     Route: 048
     Dates: start: 20171205
  2. WELCHOL [Concomitant]
     Active Substance: COLESEVELAM HYDROCHLORIDE
     Indication: PRODUCT USED FOR UNKNOWN INDICATION
     Route: 048
  3. LOVASTATIN. [Concomitant]
     Active Substance: LOVASTATIN
     Indication: PRODUCT USED FOR UNKNOWN INDICATION
     Route: 048
  4. APRISO [Suspect]
     Active Substance: MESALAMINE
     Indication: DIARRHOEA
     Route: 048
     Dates: start: 2014, end: 201708

REACTIONS (3)
  - Corneal transplant [Unknown]
  - Constipation [Recovering/Resolving]
  - Off label use [Unknown]

NARRATIVE: CASE EVENT DATE: 2014
